FAERS Safety Report 10086987 (Version 1)
Quarter: 2014Q2

REPORT INFORMATION
  Report Type: Spontaneous
  Country: DE (occurrence: DE)
  Receive Date: 20140418
  Receipt Date: 20140418
  Transmission Date: 20141212
  Serious: Yes (Life-Threatening, Hospitalization)
  Sender: FDA-Public Use
  Company Number: CHNY2014DE001075

PATIENT
  Age: 58 Year
  Sex: 0

DRUGS (1)
  1. VOLTAREN DOLO [Suspect]
     Indication: PAIN
     Dosage: 25 MG
     Route: 048
     Dates: start: 201404

REACTIONS (3)
  - Swelling [Recovering/Resolving]
  - Laryngeal oedema [Recovering/Resolving]
  - Swelling face [Recovering/Resolving]
